FAERS Safety Report 12887472 (Version 1)
Quarter: 2016Q4

REPORT INFORMATION
  Report Type: Report from Study
  Country: US (occurrence: US)
  Receive Date: 20161026
  Receipt Date: 20161026
  Transmission Date: 20170207
  Serious: Yes (Other)
  Sender: FDA-Public Use
  Company Number: US-EXELIXIS-XL18416007385

PATIENT
  Age: 26 Year
  Sex: Male
  Weight: 54.7 kg

DRUGS (7)
  1. IMODIUM [Concomitant]
     Active Substance: LOPERAMIDE HYDROCHLORIDE
  2. XL184 [Suspect]
     Active Substance: CABOZANTINIB
     Dosage: 60 MG, QD
     Route: 048
     Dates: start: 20160428, end: 20160626
  3. XL184 [Suspect]
     Active Substance: CABOZANTINIB
     Dosage: 40 MG, QD
     Route: 048
     Dates: start: 20160627, end: 20161018
  4. XL184 [Suspect]
     Active Substance: CABOZANTINIB
     Indication: NEUROFIBROMA
     Dosage: 40 MG, QD
     Route: 048
     Dates: start: 20160303, end: 20160427
  5. SYNTHROID [Concomitant]
     Active Substance: LEVOTHYROXINE SODIUM
     Indication: HYPOTHYROIDISM
  6. VALIUM [Concomitant]
     Active Substance: DIAZEPAM
  7. GORMEL CREME 20% UREA [Concomitant]

REACTIONS (1)
  - Skin infection [Recovering/Resolving]

NARRATIVE: CASE EVENT DATE: 20161010
